FAERS Safety Report 10961445 (Version 1)
Quarter: 2015Q1

REPORT INFORMATION
  Report Type: Spontaneous
  Country: US (occurrence: None)
  Receive Date: 20150326
  Receipt Date: 20150326
  Transmission Date: 20150721
  Serious: Yes (Other)
  Sender: FDA-Public Use
  Company Number: None

PATIENT
  Age: 44 Year
  Sex: Female
  Weight: 49.9 kg

DRUGS (2)
  1. LORATADINE. [Concomitant]
     Active Substance: LORATADINE
  2. TRETINOIN. [Suspect]
     Active Substance: TRETINOIN
     Indication: ACNE
     Dosage: PEA SIZE AMOUNT, 3 TIMES WEEKLY, APPLIED TO A SURFACE, USUALLY THE SKIN
     Dates: start: 20150126, end: 20150304

REACTIONS (5)
  - Product quality issue [None]
  - Product label issue [None]
  - Product physical consistency issue [None]
  - Acne [None]
  - Product substitution issue [None]

NARRATIVE: CASE EVENT DATE: 20150311
